FAERS Safety Report 26154957 (Version 1)
Quarter: 2025Q4

REPORT INFORMATION
  Report Type: Spontaneous
  Country: BR (occurrence: BR)
  Receive Date: 20251215
  Receipt Date: 20251215
  Transmission Date: 20260118
  Serious: Yes (Hospitalization)
  Sender: BIOGEN
  Company Number: BR-BIOGEN-2094992

PATIENT
  Age: 18 Year
  Sex: Female
  Weight: 94 kg

DRUGS (2)
  1. TECFIDERA [Suspect]
     Active Substance: DIMETHYL FUMARATE
     Indication: Multiple sclerosis
     Dosage: 120 MG FOR 7 DAYS.
     Dates: start: 202310
  2. TECFIDERA [Suspect]
     Active Substance: DIMETHYL FUMARATE
     Dates: start: 2023, end: 20250820

REACTIONS (9)
  - Sensory loss [Unknown]
  - White blood cell disorder [Unknown]
  - Arthritis viral [Unknown]
  - Chikungunya virus infection [Unknown]
  - Pharyngitis [Unknown]
  - Drug ineffective [Unknown]
  - Multiple sclerosis [Unknown]
  - Urinary tract infection [Unknown]
  - Anxiety [Unknown]

NARRATIVE: CASE EVENT DATE: 20230101
